FAERS Safety Report 5857168-X (Version None)
Quarter: 2008Q3

REPORT INFORMATION
  Report Type: 
  Country: None (occurrence: None)
  Receive Date: 20080825
  Receipt Date: 20080820
  Transmission Date: 20090109
  Serious: Yes (Other)
  Sender: FDA-Public Use
  Company Number: PHHY2008CH18591

PATIENT
  Age: 82 Year
  Sex: Male

DRUGS (4)
  1. EXELON [Suspect]
     Dosage: 4.6/24 HOURS,PATCH 5
     Dates: start: 20080301
  2. EXELON [Suspect]
     Dosage: 9.5MG/24H, PATCH 10
     Dates: start: 20080401
  3. NEURONTIN [Suspect]
     Dosage: 400MG/DAY
     Dates: start: 20080301
  4. LITHIUM CARBONATE [Concomitant]
     Dosage: UNK

REACTIONS (2)
  - CONFUSIONAL STATE [None]
  - MEMORY IMPAIRMENT [None]
